FAERS Safety Report 7176736-9 (Version None)
Quarter: 2010Q4

REPORT INFORMATION
  Report Type: 
  Country: None (occurrence: None)
  Receive Date: 20101215
  Receipt Date: 20101215
  Transmission Date: 20110411
  Serious: No
  Sender: FDA-Public Use
  Company Number: None

PATIENT
  Age: 7 Year
  Sex: Female
  Weight: 25.4014 kg

DRUGS (1)
  1. VERAMYST [Suspect]
     Indication: RHINITIS ALLERGIC
     Dosage: 2 SPRAYS QDAY NASAL
     Route: 045
     Dates: start: 20100301, end: 20101212

REACTIONS (1)
  - CATARACT [None]
